FAERS Safety Report 9105319 (Version 1)
Quarter: 2013Q1

REPORT INFORMATION
  Report Type: Spontaneous
  Country: US (occurrence: US)
  Receive Date: 20130220
  Receipt Date: 20130220
  Transmission Date: 20140127
  Serious: Yes (Death)
  Sender: FDA-Public Use
  Company Number: US-GLAXOSMITHKLINE-A1012924A

PATIENT
  Sex: Female

DRUGS (2)
  1. FLOLAN [Suspect]
     Dosage: 34NGKM CONTINUOUS
     Route: 042
  2. REVATIO [Concomitant]

REACTIONS (3)
  - Disease progression [Unknown]
  - Fluid retention [Unknown]
  - Respiratory disorder [Fatal]
